FAERS Safety Report 21865217 (Version 1)
Quarter: 2023Q1

REPORT INFORMATION
  Report Type: Spontaneous
  Country: US (occurrence: US)
  Receive Date: 20230116
  Receipt Date: 20230116
  Transmission Date: 20230417
  Serious: No
  Sender: FDA-Public Use
  Company Number: US-GSKCCFUS-Case-01601202_AE-90485

PATIENT
  Age: 65 Year
  Sex: Male

DRUGS (1)
  1. BREO ELLIPTA [Suspect]
     Active Substance: FLUTICASONE FUROATE\VILANTEROL TRIFENATATE
     Indication: Product used for unknown indication
     Dosage: UNK
     Dates: start: 20230111

REACTIONS (3)
  - Body temperature decreased [Unknown]
  - Lung disorder [Unknown]
  - Cough [Unknown]

NARRATIVE: CASE EVENT DATE: 20230101
